FAERS Safety Report 26187074 (Version 1)
Quarter: 2025Q4

REPORT INFORMATION
  Report Type: Spontaneous
  Country: EU (occurrence: EU)
  Receive Date: 20251222
  Receipt Date: 20251222
  Transmission Date: 20260118
  Serious: Yes (Life-Threatening)
  Sender: MYLAN
  Company Number: None

PATIENT
  Age: 56 Year
  Sex: Female
  Weight: 70 kg

DRUGS (32)
  1. DEXAMETHASONE [Suspect]
     Active Substance: DEXAMETHASONE
     Indication: Prophylaxis of nausea and vomiting
     Dosage: 8 MILLIGRAM, ONCE
     Dates: start: 20240805, end: 20240805
  2. DEXAMETHASONE [Suspect]
     Active Substance: DEXAMETHASONE
     Dosage: 8 MILLIGRAM, ONCE
     Route: 042
     Dates: start: 20240805, end: 20240805
  3. DEXAMETHASONE [Suspect]
     Active Substance: DEXAMETHASONE
     Dosage: 8 MILLIGRAM, ONCE
     Route: 042
     Dates: start: 20240805, end: 20240805
  4. DEXAMETHASONE [Suspect]
     Active Substance: DEXAMETHASONE
     Dosage: 8 MILLIGRAM, ONCE
     Dates: start: 20240805, end: 20240805
  5. SUFENTANIL [Suspect]
     Active Substance: SUFENTANIL
     Indication: Analgesic therapy
     Dosage: 15 MICROGRAM, ONCE
     Dates: start: 20240805, end: 20240805
  6. SUFENTANIL [Suspect]
     Active Substance: SUFENTANIL
     Dosage: 15 MICROGRAM, ONCE
     Route: 042
     Dates: start: 20240805, end: 20240805
  7. SUFENTANIL [Suspect]
     Active Substance: SUFENTANIL
     Dosage: 15 MICROGRAM, ONCE
     Route: 042
     Dates: start: 20240805, end: 20240805
  8. SUFENTANIL [Suspect]
     Active Substance: SUFENTANIL
     Dosage: 15 MICROGRAM, ONCE
     Dates: start: 20240805, end: 20240805
  9. ATRACURIUM [Suspect]
     Active Substance: ATRACURIUM
     Indication: Muscle relaxant therapy
     Dosage: 30 MILLIGRAM, ONCE
     Dates: start: 20240805, end: 20240805
  10. ATRACURIUM [Suspect]
     Active Substance: ATRACURIUM
     Dosage: 30 MILLIGRAM, ONCE
     Route: 042
     Dates: start: 20240805, end: 20240805
  11. ATRACURIUM [Suspect]
     Active Substance: ATRACURIUM
     Dosage: 30 MILLIGRAM, ONCE
     Route: 042
     Dates: start: 20240805, end: 20240805
  12. ATRACURIUM [Suspect]
     Active Substance: ATRACURIUM
     Dosage: 30 MILLIGRAM, ONCE
     Dates: start: 20240805, end: 20240805
  13. PROPOFOL [Suspect]
     Active Substance: PROPOFOL
     Indication: Anaesthesia
     Dosage: 150 MILLIGRAM, ONCE
     Dates: start: 20240805, end: 20240805
  14. PROPOFOL [Suspect]
     Active Substance: PROPOFOL
     Dosage: 150 MILLIGRAM, ONCE
     Route: 042
     Dates: start: 20240805, end: 20240805
  15. PROPOFOL [Suspect]
     Active Substance: PROPOFOL
     Dosage: 150 MILLIGRAM, ONCE
     Route: 042
     Dates: start: 20240805, end: 20240805
  16. PROPOFOL [Suspect]
     Active Substance: PROPOFOL
     Dosage: 150 MILLIGRAM, ONCE
     Dates: start: 20240805, end: 20240805
  17. KETAMINE [Suspect]
     Active Substance: KETAMINE
     Indication: Anaesthesia
     Dosage: 10 MILLIGRAM, ONCE
     Dates: start: 20240805, end: 20240805
  18. KETAMINE [Suspect]
     Active Substance: KETAMINE
     Dosage: 10 MILLIGRAM, ONCE
     Route: 042
     Dates: start: 20240805, end: 20240805
  19. KETAMINE [Suspect]
     Active Substance: KETAMINE
     Dosage: 10 MILLIGRAM, ONCE
     Route: 042
     Dates: start: 20240805, end: 20240805
  20. KETAMINE [Suspect]
     Active Substance: KETAMINE
     Dosage: 10 MILLIGRAM, ONCE
     Dates: start: 20240805, end: 20240805
  21. LIDOCAINE [Suspect]
     Active Substance: LIDOCAINE
     Indication: Anaesthesia
     Dosage: 80 MILLIGRAM, ONCE
     Dates: start: 20240805, end: 20240805
  22. LIDOCAINE [Suspect]
     Active Substance: LIDOCAINE
     Dosage: 80 MILLIGRAM, ONCE
     Route: 042
     Dates: start: 20240805, end: 20240805
  23. LIDOCAINE [Suspect]
     Active Substance: LIDOCAINE
     Dosage: 80 MILLIGRAM, ONCE
     Route: 042
     Dates: start: 20240805, end: 20240805
  24. LIDOCAINE [Suspect]
     Active Substance: LIDOCAINE
     Dosage: 80 MILLIGRAM, ONCE
     Dates: start: 20240805, end: 20240805
  25. NAPROXEN [Concomitant]
     Active Substance: NAPROXEN
     Indication: Product used for unknown indication
     Dosage: 550 MILLIGRAM, BID (TWICE DAILY)
     Route: 061
  26. NAPROXEN [Concomitant]
     Active Substance: NAPROXEN
     Dosage: 550 MILLIGRAM, BID (TWICE DAILY)
     Route: 048
  27. NAPROXEN [Concomitant]
     Active Substance: NAPROXEN
     Dosage: 550 MILLIGRAM, BID (TWICE DAILY)
     Route: 048
  28. NAPROXEN [Concomitant]
     Active Substance: NAPROXEN
     Dosage: 550 MILLIGRAM, BID (TWICE DAILY)
     Route: 061
  29. OMEPRAZOLE [Concomitant]
     Active Substance: OMEPRAZOLE
     Indication: Product used for unknown indication
     Dosage: 20 MILLIGRAM, QD (20 MG ONCE)
     Route: 061
  30. OMEPRAZOLE [Concomitant]
     Active Substance: OMEPRAZOLE
     Dosage: 20 MILLIGRAM, QD (20 MG ONCE)
     Route: 048
  31. OMEPRAZOLE [Concomitant]
     Active Substance: OMEPRAZOLE
     Dosage: 20 MILLIGRAM, QD (20 MG ONCE)
     Route: 048
  32. OMEPRAZOLE [Concomitant]
     Active Substance: OMEPRAZOLE
     Dosage: 20 MILLIGRAM, QD (20 MG ONCE)
     Route: 061

REACTIONS (2)
  - Tachyarrhythmia [Recovered/Resolved]
  - Hypotension [Recovered/Resolved]

NARRATIVE: CASE EVENT DATE: 20240805
